FAERS Safety Report 8162402-X (Version None)
Quarter: 2012Q1

REPORT INFORMATION
  Report Type: 
  Country: None (occurrence: None)
  Receive Date: 20120224
  Receipt Date: 20120214
  Transmission Date: 20120608
  Serious: Yes (Hospitalization)
  Sender: FDA-Public Use
  Company Number: US-ELI_LILLY_AND_COMPANY-US201112003802

PATIENT
  Sex: Female

DRUGS (13)
  1. FORTEO [Suspect]
     Dosage: 20 UG, QD
     Route: 065
  2. PRAVASTATIN [Concomitant]
     Dosage: UNK, QD
  3. VITAMIN B1 TAB [Concomitant]
     Dosage: UNK, QD
  4. METHADONE HCL [Concomitant]
     Dosage: UNK, QD
  5. VITAMIN D [Concomitant]
     Dosage: UNK, QD
  6. CALCIUM [Concomitant]
     Dosage: UNK, QD
  7. VITAMIN B-12 [Concomitant]
  8. XANAX [Concomitant]
     Dosage: UNK, QD
  9. VITAMIN B6 [Concomitant]
     Dosage: UNK, QD
  10. FORTEO [Suspect]
     Indication: OSTEOPOROSIS
     Dosage: 20 UG, QD
     Route: 065
     Dates: start: 20111204
  11. PRILOSEC [Concomitant]
     Dosage: UNK, QD
  12. REGLAN [Concomitant]
     Dosage: UNK, QD
  13. PROZAC [Concomitant]
     Dosage: UNK, QD

REACTIONS (9)
  - IMPAIRED GASTRIC EMPTYING [None]
  - VOMITING [None]
  - HEADACHE [None]
  - FATIGUE [None]
  - ARTHRALGIA [None]
  - PAIN IN EXTREMITY [None]
  - JOINT SWELLING [None]
  - ABDOMINAL PAIN UPPER [None]
  - NAUSEA [None]
